FAERS Safety Report 13143263 (Version 2)
Quarter: 2017Q1

REPORT INFORMATION
  Report Type: Spontaneous
  Country: US (occurrence: US)
  Receive Date: 20170123
  Receipt Date: 20170127
  Transmission Date: 20170428
  Serious: Yes (Other)
  Sender: FDA-Public Use
  Company Number: US-CELGENEUS-USA-2017014190

PATIENT
  Sex: Male

DRUGS (1)
  1. OTEZLA [Suspect]
     Active Substance: APREMILAST
     Indication: PSORIATIC ARTHROPATHY
     Dosage: 60 MILLIGRAM
     Route: 048

REACTIONS (6)
  - Aphthous ulcer [Unknown]
  - Insomnia [Unknown]
  - Weight decreased [Unknown]
  - Lip swelling [Unknown]
  - Pruritus [Unknown]
  - Abdominal discomfort [Unknown]
